FAERS Safety Report 23042208 (Version 1)
Quarter: 2023Q4

REPORT INFORMATION
  Report Type: Spontaneous
  Country: US (occurrence: US)
  Receive Date: 20231008
  Receipt Date: 20231008
  Transmission Date: 20240109
  Serious: No
  Sender: FDA-Public Use
  Company Number: US-HORIZON THERAPEUTICS-HZN-2023-004847

PATIENT

DRUGS (44)
  1. KRYSTEXXA [Suspect]
     Active Substance: PEGLOTICASE
     Indication: Gout
     Dosage: FIRST INFUSION
     Route: 042
     Dates: start: 20220110
  2. KRYSTEXXA [Suspect]
     Active Substance: PEGLOTICASE
     Dosage: SECOND INFUSION
     Route: 042
     Dates: start: 20220124
  3. KRYSTEXXA [Suspect]
     Active Substance: PEGLOTICASE
     Dosage: THIRD INFUSION
     Route: 042
     Dates: start: 20220207
  4. KRYSTEXXA [Suspect]
     Active Substance: PEGLOTICASE
     Dosage: FOURTH INFUSION
     Route: 042
     Dates: start: 20220221
  5. KRYSTEXXA [Suspect]
     Active Substance: PEGLOTICASE
     Dosage: FIFTH INFUSION
     Route: 042
     Dates: start: 20220307
  6. KRYSTEXXA [Suspect]
     Active Substance: PEGLOTICASE
     Dosage: SIXTH INFUSION
     Route: 042
     Dates: start: 20220321
  7. KRYSTEXXA [Suspect]
     Active Substance: PEGLOTICASE
     Dosage: SEVENTH INFUSION
     Route: 042
     Dates: start: 20220404
  8. KRYSTEXXA [Suspect]
     Active Substance: PEGLOTICASE
     Dosage: EIGHTH INFUSION
     Route: 042
     Dates: start: 20220418
  9. KRYSTEXXA [Suspect]
     Active Substance: PEGLOTICASE
     Dosage: NINTH INFUSION
     Route: 042
     Dates: start: 20220502
  10. KRYSTEXXA [Suspect]
     Active Substance: PEGLOTICASE
     Dosage: TENTH INFUSION
     Route: 042
     Dates: start: 20220516
  11. KRYSTEXXA [Suspect]
     Active Substance: PEGLOTICASE
     Dosage: ELEVENTH INFUSION
     Route: 042
     Dates: start: 20220606
  12. KRYSTEXXA [Suspect]
     Active Substance: PEGLOTICASE
     Dosage: TWELFTH INFUSION
     Route: 042
     Dates: start: 20220620
  13. KRYSTEXXA [Suspect]
     Active Substance: PEGLOTICASE
     Dosage: THIRTEENTH INFUSION
     Route: 042
     Dates: start: 20220705
  14. KRYSTEXXA [Suspect]
     Active Substance: PEGLOTICASE
     Dosage: FOURTEENTH INFUSION
     Route: 042
     Dates: start: 20220719
  15. KRYSTEXXA [Suspect]
     Active Substance: PEGLOTICASE
     Dosage: FIFTEENTH INFUSION
     Route: 042
     Dates: start: 20220803
  16. KRYSTEXXA [Suspect]
     Active Substance: PEGLOTICASE
     Dosage: SIXTEENTH INFUSION
     Route: 042
     Dates: start: 20220817
  17. METHOTREXATE [Suspect]
     Active Substance: METHOTREXATE
     Indication: Premedication
     Dosage: 15 MG, WEEKLY
     Route: 042
     Dates: start: 2021
  18. FEXOFENADINE [Concomitant]
     Active Substance: FEXOFENADINE HYDROCHLORIDE
     Dosage: DOSE 1: 180 MG
     Route: 048
     Dates: start: 20220110
  19. FEXOFENADINE [Concomitant]
     Active Substance: FEXOFENADINE HYDROCHLORIDE
     Dosage: DOSE 2: 180 MG
     Route: 048
     Dates: start: 20220123
  20. FEXOFENADINE [Concomitant]
     Active Substance: FEXOFENADINE HYDROCHLORIDE
     Dosage: DOSE 3: 180 MG
     Route: 048
     Dates: start: 20220206
  21. FEXOFENADINE [Concomitant]
     Active Substance: FEXOFENADINE HYDROCHLORIDE
     Dosage: DOSE 4: 180 MG
     Route: 048
     Dates: start: 20220220
  22. FEXOFENADINE [Concomitant]
     Active Substance: FEXOFENADINE HYDROCHLORIDE
     Dosage: DOSE 5: 180 MG
     Route: 048
     Dates: start: 20220306
  23. FEXOFENADINE [Concomitant]
     Active Substance: FEXOFENADINE HYDROCHLORIDE
     Dosage: DOSE 6: 180 MG
     Route: 048
     Dates: start: 20220320
  24. FEXOFENADINE [Concomitant]
     Active Substance: FEXOFENADINE HYDROCHLORIDE
     Dosage: DOSE 7: 180 MG
     Route: 048
     Dates: start: 20220403
  25. FEXOFENADINE [Concomitant]
     Active Substance: FEXOFENADINE HYDROCHLORIDE
     Dosage: DOSE 8: 180 MG
     Route: 048
     Dates: start: 20220417
  26. FEXOFENADINE [Concomitant]
     Active Substance: FEXOFENADINE HYDROCHLORIDE
     Dosage: DOSE 9: 180  MG
     Route: 048
     Dates: start: 20220501
  27. FEXOFENADINE [Concomitant]
     Active Substance: FEXOFENADINE HYDROCHLORIDE
     Dosage: DOSE 10: 180 MG
     Route: 048
     Dates: start: 20220515
  28. FEXOFENADINE [Concomitant]
     Active Substance: FEXOFENADINE HYDROCHLORIDE
     Dosage: DOSE 11: 180 MG
     Route: 048
     Dates: start: 20220605
  29. FEXOFENADINE [Concomitant]
     Active Substance: FEXOFENADINE HYDROCHLORIDE
     Dosage: DOSE 12: 180 MG
     Route: 048
     Dates: start: 20220619
  30. FEXOFENADINE [Concomitant]
     Active Substance: FEXOFENADINE HYDROCHLORIDE
     Dosage: DOSE 13: 180 MG
     Route: 048
     Dates: start: 20220704
  31. FEXOFENADINE [Concomitant]
     Active Substance: FEXOFENADINE HYDROCHLORIDE
     Dosage: DOSE 14: 180 MG
     Route: 048
     Dates: start: 20220718
  32. FEXOFENADINE [Concomitant]
     Active Substance: FEXOFENADINE HYDROCHLORIDE
     Dosage: DOSE 15: 180 MG
     Route: 048
     Dates: start: 20220802
  33. FEXOFENADINE [Concomitant]
     Active Substance: FEXOFENADINE HYDROCHLORIDE
     Dosage: DOSE 16: 180 MG
     Route: 048
     Dates: start: 20220816
  34. METHYLPREDNISOLONE [Concomitant]
     Active Substance: METHYLPREDNISOLONE
     Dosage: DOSE 1
     Route: 042
     Dates: start: 20220110
  35. METHYLPREDNISOLONE [Concomitant]
     Active Substance: METHYLPREDNISOLONE
     Dosage: DOSE 2:  MG
     Route: 042
     Dates: start: 20220124
  36. METHYLPREDNISOLONE [Concomitant]
     Active Substance: METHYLPREDNISOLONE
     Dosage: DOSE 3:125 MG
     Route: 042
     Dates: start: 20220207
  37. METHYLPREDNISOLONE [Concomitant]
     Active Substance: METHYLPREDNISOLONE
     Dosage: DOSE 4: 125 MG
     Route: 042
     Dates: start: 20220221
  38. METHYLPREDNISOLONE [Concomitant]
     Active Substance: METHYLPREDNISOLONE
     Dosage: DOSE 5: 62.5 MG
     Route: 042
     Dates: start: 20220307
  39. METHYLPREDNISOLONE [Concomitant]
     Active Substance: METHYLPREDNISOLONE
     Dosage: DOSE 6: 31.25 MG
     Route: 042
     Dates: start: 20220321
  40. FOLIC ACID [Concomitant]
     Active Substance: FOLIC ACID
     Dosage: 1 MG ORALLY ONCE A DAY
     Route: 048
  41. INDOMETHACIN [Concomitant]
     Active Substance: INDOMETHACIN
     Route: 048
  42. PREDNISONE [Concomitant]
     Active Substance: PREDNISONE
     Dosage: 10 MG, PRN
     Route: 048
  43. COLCHICINE [Concomitant]
     Active Substance: COLCHICINE
     Dosage: 0.6 MG ORALLY DAILY
     Route: 048
  44. ALLOPURINOL [Concomitant]
     Active Substance: ALLOPURINOL
     Dosage: 100 MG
     Route: 048
     Dates: start: 2022

REACTIONS (2)
  - Gout [Recovered/Resolved]
  - Off label use [Unknown]

NARRATIVE: CASE EVENT DATE: 20210101
